FAERS Safety Report 5263969-1 (Version None)
Quarter: 2007Q1

REPORT INFORMATION
  Report Type: 
  Country: None (occurrence: None)
  Receive Date: 20061213
  Receipt Date: 20051028
  Transmission Date: 20070707
  Serious: Yes (Other)
  Sender: FDA-Public Use
  Company Number: 2005UW15059

PATIENT
  Age: 66 Year
  Sex: Male

DRUGS (2)
  1. IRESSA [Suspect]
     Indication: LUNG NEOPLASM MALIGNANT
     Dosage: TEMPORARILY DISCONTINUED
     Dates: end: 20051002
  2. IRESSA [Suspect]
     Indication: LUNG NEOPLASM MALIGNANT
     Dates: end: 20051017

REACTIONS (1)
  - HAEMOPTYSIS [None]
